FAERS Safety Report 5700971-7 (Version None)
Quarter: 2008Q2

REPORT INFORMATION
  Report Type: 
  Country: None (occurrence: None)
  Receive Date: 20080410
  Receipt Date: 20080331
  Transmission Date: 20081010
  Serious: Yes (Hospitalization, Other)
  Sender: FDA-Public Use
  Company Number: PL-ROCHE-556357

PATIENT
  Age: 44 Year
  Sex: Male

DRUGS (4)
  1. RIBAVIRIN [Suspect]
     Route: 048
     Dates: start: 20030301, end: 20030701
  2. RIBAVIRIN [Suspect]
     Route: 048
     Dates: start: 20040901, end: 20050701
  3. PEG-INTRON [Suspect]
     Route: 058
     Dates: start: 20040901, end: 20050701
  4. INTRON A [Suspect]
     Route: 065
     Dates: start: 20030301, end: 20030701

REACTIONS (4)
  - NECROTISING FASCIITIS [None]
  - NO THERAPEUTIC RESPONSE [None]
  - PNEUMONIA [None]
  - VIRAL TEST POSITIVE [None]
